FAERS Safety Report 13897438 (Version 1)
Quarter: 2017Q3

REPORT INFORMATION
  Report Type: Spontaneous
  Country: US (occurrence: US)
  Receive Date: 20170823
  Receipt Date: 20170823
  Transmission Date: 20171127
  Serious: No
  Sender: FDA-Public Use
  Company Number: US-SANOFI-AVENTIS-2010SA072483

PATIENT
  Age: 69 Year
  Sex: Female

DRUGS (15)
  1. DIGOXIN. [Concomitant]
     Active Substance: DIGOXIN
     Dates: start: 2010
  2. TOPROL XL [Concomitant]
     Active Substance: METOPROLOL SUCCINATE
  3. ESOMEPRAZOLE [Concomitant]
     Active Substance: ESOMEPRAZOLE
  4. MULTAQ [Suspect]
     Active Substance: DRONEDARONE
     Indication: ATRIAL FIBRILLATION
     Route: 048
     Dates: start: 201006
  5. DIGOXIN. [Concomitant]
     Active Substance: DIGOXIN
     Dates: start: 2010
  6. GARLIC. [Concomitant]
     Active Substance: GARLIC
  7. ASPIRIN. [Concomitant]
     Active Substance: ASPIRIN
  8. AMLODIPINE [Concomitant]
     Active Substance: AMLODIPINE BESYLATE
     Route: 065
  9. ZOCOR [Concomitant]
     Active Substance: SIMVASTATIN
  10. FISH OIL [Concomitant]
     Active Substance: FISH OIL
  11. VITAMINS NOS [Concomitant]
     Active Substance: VITAMINS
  12. METOPROLOL. [Concomitant]
     Active Substance: METOPROLOL
     Indication: BLOOD PRESSURE MEASUREMENT
     Route: 065
  13. PLAVIX [Concomitant]
     Active Substance: CLOPIDOGREL BISULFATE
  14. COENZYME Q10 [Concomitant]
     Active Substance: UBIDECARENONE
  15. GINGER. [Concomitant]
     Active Substance: GINGER

REACTIONS (4)
  - Skin discolouration [Recovered/Resolved]
  - Peripheral swelling [Recovered/Resolved]
  - Oedema peripheral [Unknown]
  - Skin tightness [Recovered/Resolved]

NARRATIVE: CASE EVENT DATE: 2010
